FAERS Safety Report 6647177-5 (Version None)
Quarter: 2010Q1

REPORT INFORMATION
  Report Type: 
  Country: None (occurrence: None)
  Receive Date: 20100323
  Receipt Date: 20100303
  Transmission Date: 20100710
  Serious: No
  Sender: FDA-Public Use
  Company Number: B0630955A

PATIENT
  Age: 40 Year
  Sex: Female

DRUGS (2)
  1. ACITRETIN [Suspect]
     Indication: PSORIASIS
     Route: 065
     Dates: start: 20090401, end: 20090501
  2. CONTRACEPTION [Concomitant]
     Route: 065

REACTIONS (1)
  - DRUG EXPOSURE DURING PREGNANCY [None]
